FAERS Safety Report 24736833 (Version 1)
Quarter: 2024Q4

REPORT INFORMATION
  Report Type: Spontaneous
  Country: GB (occurrence: GB)
  Receive Date: 20241216
  Receipt Date: 20241216
  Transmission Date: 20250115
  Serious: Yes (Other)
  Sender: AUROBINDO
  Company Number: GB-BRISTOL-MYERS SQUIBB COMPANY-2024-166984

PATIENT
  Age: 84 Year
  Sex: Female
  Weight: 55 kg

DRUGS (6)
  1. APIXABAN [Suspect]
     Active Substance: APIXABAN
     Indication: Pulmonary embolism
     Dosage: 10 MILLIGRAM, TWO TIMES A DAY
     Route: 048
     Dates: start: 20210407
  2. APIXABAN [Suspect]
     Active Substance: APIXABAN
     Dosage: 40 MILLIGRAM, ONCE A DAY (20 MG TWICE A DAY)
     Route: 048
     Dates: start: 20210407
  3. APIXABAN [Suspect]
     Active Substance: APIXABAN
     Dosage: 5 MILLIGRAM, TWO TIMES A DAY
     Route: 048
     Dates: start: 20210414
  4. APIXABAN [Suspect]
     Active Substance: APIXABAN
     Dosage: 20 MILLIGRAM, ONCE A DAY (10 MG TWICE A DAY)
     Route: 048
     Dates: start: 20210414
  5. APIXABAN [Suspect]
     Active Substance: APIXABAN
     Indication: Pulmonary embolism
     Dosage: 20 MG TWICE A DAY
     Dates: start: 20210407
  6. APIXABAN [Suspect]
     Active Substance: APIXABAN
     Dosage: 10 MG TWICE A DAY
     Dates: start: 20210414

REACTIONS (1)
  - Haemorrhage [Unknown]

NARRATIVE: CASE EVENT DATE: 20210416
